FAERS Safety Report 19608844 (Version 1)
Quarter: 2021Q3

REPORT INFORMATION
  Report Type: Spontaneous
  Country: AU (occurrence: AU)
  Receive Date: 20210726
  Receipt Date: 20210726
  Transmission Date: 20211014
  Serious: Yes (Other)
  Sender: FDA-Public Use
  Company Number: AU-ORGANON-2009AUS011362

PATIENT
  Age: 6 Year
  Sex: Female

DRUGS (5)
  1. EZETIMIBE (+) SIMVASTATIN [Suspect]
     Active Substance: EZETIMIBE\SIMVASTATIN
     Dosage: DOSE REDUCED
  2. MINOXIDIL. [Suspect]
     Active Substance: MINOXIDIL
     Dosage: 1.0 MILLIGRAM, QD (DOSE INCREASED)
  3. SIMVASTATIN. [Suspect]
     Active Substance: SIMVASTATIN
     Indication: ALOPECIA UNIVERSALIS
     Dosage: 20 MILLIGRAM, QD
  4. MINOXIDIL. [Suspect]
     Active Substance: MINOXIDIL
     Indication: ALOPECIA UNIVERSALIS
     Dosage: 0.5 MILLIGRAM, QD
  5. EZETIMIBE (+) SIMVASTATIN [Suspect]
     Active Substance: EZETIMIBE\SIMVASTATIN
     Indication: ALOPECIA UNIVERSALIS
     Dosage: 40/10 MF

REACTIONS (3)
  - Alopecia universalis [Recovered/Resolved]
  - Condition aggravated [Unknown]
  - Hepatic enzyme abnormal [Recovering/Resolving]
